FAERS Safety Report 4975815-1 (Version None)
Quarter: 2006Q2

REPORT INFORMATION
  Report Type: 
  Country: None (occurrence: None)
  Receive Date: 20060418
  Receipt Date: 20060408
  Transmission Date: 20061013
  Serious: Yes (Hospitalization)
  Sender: FDA-Public Use
  Company Number: DE-ABBOTT-06P-062-0330375-00

PATIENT
  Sex: Male
  Weight: 74 kg

DRUGS (2)
  1. ZEMPLAR [Suspect]
     Indication: SECONDARY HYPERTENSION
     Route: 042
     Dates: start: 20060222
  2. CALCIUM ACETATE [Concomitant]
     Indication: RENAL FAILURE CHRONIC

REACTIONS (2)
  - ABDOMINAL PAIN [None]
  - SUBILEUS [None]
